FAERS Safety Report 5587963-6 (Version None)
Quarter: 2008Q1

REPORT INFORMATION
  Report Type: 
  Country: None (occurrence: None)
  Receive Date: 20080111
  Receipt Date: 20080102
  Transmission Date: 20080703
  Serious: Yes (Other)
  Sender: FDA-Public Use
  Company Number: GB-JNJFOC-20080101576

PATIENT
  Age: 30 Year
  Sex: Female
  Weight: 84 kg

DRUGS (5)
  1. TRAMADOL HYDROCHLORIDE [Suspect]
     Indication: DRUG USE FOR UNKNOWN INDICATION
     Route: 065
  2. VERSATIS [Interacting]
     Indication: DRUG USE FOR UNKNOWN INDICATION
     Route: 061
  3. IBUPROFEN [Concomitant]
     Route: 065
  4. KAPAKE [Concomitant]
     Route: 065
  5. PARACETAMOL [Concomitant]
     Route: 065

REACTIONS (4)
  - DRUG INTERACTION [None]
  - ERYTHEMA [None]
  - HYPERHIDROSIS [None]
  - MALAISE [None]
